FAERS Safety Report 10340615 (Version 1)
Quarter: 2014Q3

REPORT INFORMATION
  Report Type: Spontaneous
  Country: NL (occurrence: NL)
  Receive Date: 20140724
  Receipt Date: 20140724
  Transmission Date: 20150326
  Serious: Yes (Other)
  Sender: FDA-Public Use
  Company Number: NL-PFIZER INC-2014204668

PATIENT
  Age: 36 Year
  Sex: Female
  Weight: 62 kg

DRUGS (14)
  1. AZITHROMYCIN [Concomitant]
     Active Substance: AZITHROMYCIN ANHYDROUS
     Dosage: 250 MG, 1X/DAY
     Dates: end: 20140701
  2. FITOMENADION [Concomitant]
     Dosage: 1 DF, 1X/DAY
  3. PANCREASE MT [Concomitant]
     Active Substance: PANCRELIPASE
  4. FLUCONAZOLE. [Interacting]
     Active Substance: FLUCONAZOLE
     Dosage: 200 MG, 1X/DAY
     Dates: start: 201406
  5. COLISTIN [Concomitant]
     Active Substance: COLISTIN
     Dosage: 1 DF, 2X/DAY
  6. FLUCONAZOLE. [Suspect]
     Active Substance: FLUCONAZOLE
     Indication: VULVOVAGINAL MYCOTIC INFECTION
     Dosage: 400 MG, 1X/DAY
     Dates: start: 20140611
  7. OMEPRAZOLE. [Concomitant]
     Active Substance: OMEPRAZOLE
     Dosage: 40 MG, 1X/DAY
  8. URSODEOXYCHOLIC ACID [Concomitant]
     Active Substance: URSODIOL
     Dosage: 300 MG, 3X/DAY
  9. SALBUTAMOL [Concomitant]
     Active Substance: ALBUTEROL
  10. TAZOCIN [Interacting]
     Active Substance: PIPERACILLIN SODIUM\TAZOBACTAM SODIUM
     Indication: INFECTION
     Dosage: UNK
     Route: 042
     Dates: start: 20140526
  11. VENTOLIN [Concomitant]
     Active Substance: ALBUTEROL SULFATE
     Dosage: 1 DF, AS NEEDED
  12. PULMOZYME [Concomitant]
     Active Substance: DORNASE ALFA
     Dosage: 1 DF, 1X/DAY
  13. HUMALOG [Concomitant]
     Active Substance: INSULIN LISPRO
  14. ISOPHANE INSULIN [Concomitant]
     Active Substance: INSULIN NOS

REACTIONS (2)
  - Pulmonary haemorrhage [Recovering/Resolving]
  - Drug interaction [Recovering/Resolving]

NARRATIVE: CASE EVENT DATE: 20140612
